FAERS Safety Report 17739574 (Version 1)
Quarter: 2020Q2

REPORT INFORMATION
  Report Type: Spontaneous
  Country: US (occurrence: US)
  Receive Date: 20200501
  Receipt Date: 20200501
  Transmission Date: 20200714
  Serious: No
  Sender: FDA-Public Use
  Company Number: None

PATIENT
  Age: 48 Year
  Sex: Female
  Weight: 63 kg

DRUGS (1)
  1. ARM + HAMMER ADVANCEWHITE TOOTHPASTE [Suspect]
     Active Substance: SODIUM FLUORIDE
     Dates: start: 20200501, end: 20200501

REACTIONS (2)
  - Gingival discomfort [None]
  - Glossitis [None]

NARRATIVE: CASE EVENT DATE: 20200501
